FAERS Safety Report 6519773-7 (Version None)
Quarter: 2009Q4

REPORT INFORMATION
  Report Type: 
  Country: None (occurrence: None)
  Receive Date: 20091228
  Receipt Date: 20091228
  Transmission Date: 20100525
  Serious: Yes (Hospitalization)
  Sender: FDA-Public Use
  Company Number: None

PATIENT
  Age: 86 Year
  Sex: Male

DRUGS (3)
  1. LISINOPRIL [Suspect]
     Indication: ACUTE MYOCARDIAL INFARCTION
     Dosage: 12.5 MG BID PO
     Route: 048
     Dates: start: 20090520, end: 20091026
  2. LISINOPRIL [Suspect]
     Indication: HYPERTENSION
     Dosage: 12.5 MG BID PO
     Route: 048
     Dates: start: 20090520, end: 20091026
  3. LISINOPRIL [Suspect]
     Indication: HYPERTENSION
     Dosage: 40 MG EVERY DAY PO
     Route: 048
     Dates: start: 20080710, end: 20091026

REACTIONS (3)
  - BRADYCARDIA [None]
  - DIZZINESS [None]
  - HYPERKALAEMIA [None]
